FAERS Safety Report 12848428 (Version 1)
Quarter: 2016Q4

REPORT INFORMATION
  Report Type: Spontaneous
  Country: US (occurrence: US)
  Receive Date: 20161014
  Receipt Date: 20161014
  Transmission Date: 20170207
  Serious: No
  Sender: FDA-Public Use
  Company Number: US-JNJFOC-20160930769

PATIENT
  Age: 74 Year
  Sex: Female
  Weight: 89.81 kg

DRUGS (2)
  1. MOTRIN IB [Suspect]
     Active Substance: IBUPROFEN
     Indication: BACK PAIN
     Dosage: 3-4 CAPLETS, 2 TIMES A DAY
     Route: 048
  2. MOTRIN IB [Suspect]
     Active Substance: IBUPROFEN
     Indication: HEADACHE
     Dosage: 3-4 CAPLETS, 2 TIMES A DAY
     Route: 048

REACTIONS (1)
  - Extra dose administered [Unknown]
